FAERS Safety Report 5134568-7 (Version None)
Quarter: 2006Q4

REPORT INFORMATION
  Report Type: 
  Country: None (occurrence: None)
  Receive Date: 20061019
  Receipt Date: 20061004
  Transmission Date: 20070319
  Serious: Yes (Death)
  Sender: FDA-Public Use
  Company Number: 2006001917

PATIENT
  Age: 47 Year
  Sex: Male
  Weight: 89 kg

DRUGS (13)
  1. ERLOTINIB (TABLET) (ERLOTINIB HCL) [Suspect]
     Indication: NON-SMALL CELL LUNG CANCER
     Dosage: 150 MG (QD),ORAL
     Route: 048
     Dates: start: 20060914, end: 20060922
  2. METHADONE HCL [Concomitant]
  3. ATIVAN [Concomitant]
  4. MORPHINE [Concomitant]
  5. PREDNISONE TAB [Concomitant]
  6. DUONEB (SALBUTAMOL SULFATE) [Concomitant]
  7. NITROGLYCERIN [Concomitant]
  8. ALBUTEROL SULFATE [Concomitant]
  9. DOCUSATE SODIUM (DOCUSATE SODIUM) [Concomitant]
  10. NOVOLIN N [Concomitant]
  11. ASPIRIN [Concomitant]
  12. ISOPHANE INSULIN [Concomitant]
  13. TARGRETIN [Suspect]
     Dosage: 825 MG (QD), ORAL
     Route: 048
     Dates: start: 20060914, end: 20060922

REACTIONS (4)
  - CARDIAC ARREST [None]
  - MALIGNANT NEOPLASM PROGRESSION [None]
  - MYOCARDIAL INFARCTION [None]
  - NON-SMALL CELL LUNG CANCER [None]
